FAERS Safety Report 20530571 (Version 1)
Quarter: 2022Q1

REPORT INFORMATION
  Report Type: Spontaneous
  Country: AU (occurrence: AU)
  Receive Date: 20220301
  Receipt Date: 20220301
  Transmission Date: 20220423
  Serious: No
  Sender: FDA-Public Use
  Company Number: AU-LUPIN PHARMACEUTICALS INC.-2022-02289

PATIENT
  Age: 54 Year
  Sex: Female

DRUGS (3)
  1. BETAMETHASONE DIPROPIONATE [Suspect]
     Active Substance: BETAMETHASONE DIPROPIONATE
     Indication: Pityriasis rubra pilaris
     Dosage: UNK
     Route: 061
  2. SALICYLIC ACID [Suspect]
     Active Substance: SALICYLIC ACID
     Indication: Pityriasis rubra pilaris
     Dosage: UNK
     Route: 061
  3. ACITRETIN [Suspect]
     Active Substance: ACITRETIN
     Indication: Pityriasis rubra pilaris
     Dosage: UNK UNK, QD (25-35 MILLIGRAM)
     Route: 065

REACTIONS (1)
  - Off label use [Unknown]
